FAERS Safety Report 10684070 (Version 1)
Quarter: 2014Q4

REPORT INFORMATION
  Report Type: Other
  Country: GB (occurrence: GB)
  Receive Date: 20141230
  Receipt Date: 20141230
  Transmission Date: 20150529
  Serious: Yes (Hospitalization, Other)
  Sender: FDA-Public Use
  Company Number: GB-MYLANLABS-2014M1015181

PATIENT

DRUGS (13)
  1. BISACODYL. [Concomitant]
     Active Substance: BISACODYL
  2. COCODAMOL [Concomitant]
     Active Substance: ACETAMINOPHEN\CODEINE PHOSPHATE
  3. ASPIRIN                            /00002701/ [Concomitant]
     Active Substance: ASPIRIN
  4. ATENOLOL. [Concomitant]
     Active Substance: ATENOLOL
  5. CETIRIZINE [Concomitant]
     Active Substance: CETIRIZINE HYDROCHLORIDE
  6. ATORVASTATIN [Concomitant]
     Active Substance: ATORVASTATIN
  7. ISOSORBIDE [Concomitant]
     Active Substance: ISOSORBIDE
  8. PIOGLITAZONE [Suspect]
     Active Substance: PIOGLITAZONE
     Indication: TYPE 2 DIABETES MELLITUS
     Dosage: 45 MG, QD
     Route: 048
  9. METFORMIN [Concomitant]
     Active Substance: METFORMIN HYDROCHLORIDE
  10. RAMIPRIL. [Concomitant]
     Active Substance: RAMIPRIL
  11. SITAGLIPTIN [Concomitant]
     Active Substance: SITAGLIPTIN
  12. GLICLAZIDE [Concomitant]
     Active Substance: GLICLAZIDE
  13. NICORANDIL [Concomitant]
     Active Substance: NICORANDIL

REACTIONS (1)
  - Pulmonary oedema [Recovered/Resolved]
